FAERS Safety Report 4935198-X (Version None)
Quarter: 2006Q1

REPORT INFORMATION
  Report Type: 
  Country: None (occurrence: None)
  Receive Date: 20060302
  Receipt Date: 20060220
  Transmission Date: 20060701
  Serious: No
  Sender: FDA-Public Use
  Company Number: 2006016074

PATIENT
  Sex: Male
  Weight: 64.4108 kg

DRUGS (7)
  1. NORVASC [Suspect]
     Indication: ILL-DEFINED DISORDER
  2. ENALAPRIL MALEATE [Concomitant]
  3. AVAPRO [Concomitant]
  4. POTASSIUM (POTASSIUM) [Concomitant]
  5. SELENIUM (SELENIUM) [Concomitant]
  6. VITAMINS (VITAMINS) [Concomitant]
  7. TORSEMIDE [Concomitant]

REACTIONS (6)
  - AORTIC VALVE REPLACEMENT [None]
  - BLOOD CHOLESTEROL INCREASED [None]
  - DIALYSIS [None]
  - FATIGUE [None]
  - MUSCULAR WEAKNESS [None]
  - RENAL FAILURE CHRONIC [None]
